FAERS Safety Report 8767427 (Version 2)
Quarter: 2012Q4

REPORT INFORMATION
  Report Type: 
  Country: US (occurrence: US)
  Receive Date: 20120904
  Receipt Date: 20121025
  Transmission Date: 20130627
  Serious: Yes (Other)
  Sender: FDA-Public Use
  Company Number: US-BAYER-2012-089557

PATIENT
  Age: 30 Year
  Sex: Female
  Weight: 51.25 kg

DRUGS (2)
  1. MIRENA [Suspect]
     Indication: BIRTH CONTROL
     Dosage: 20 mcg/24hr, CONT
     Route: 015
     Dates: start: 20070328
  2. VITAMIN D [Concomitant]
     Indication: VITAMIN D DEFICIENCY
     Dosage: 50000 iu, Qwk
     Dates: start: 20070328

REACTIONS (2)
  - Device dislocation [None]
  - No adverse event [None]
